FAERS Safety Report 21254424 (Version 1)
Quarter: 2022Q3

REPORT INFORMATION
  Report Type: Spontaneous
  Country: US (occurrence: US)
  Receive Date: 20220825
  Receipt Date: 20220825
  Transmission Date: 20221027
  Serious: Yes (Other)
  Sender: FDA-Public Use
  Company Number: US-LUPIN PHARMACEUTICALS INC.-2022-10534

PATIENT
  Age: 6 Decade

DRUGS (6)
  1. CLOBETASOL [Suspect]
     Active Substance: CLOBETASOL
     Indication: Palmar-plantar erythrodysaesthesia syndrome
     Dosage: UNK, 0.05 PERCENT OINTMENT
     Route: 065
  2. UREA [Suspect]
     Active Substance: UREA
     Indication: Palmar-plantar erythrodysaesthesia syndrome
     Dosage: UNK
     Route: 065
  3. TAZAROTENE [Suspect]
     Active Substance: TAZAROTENE
     Indication: Palmar-plantar erythrodysaesthesia syndrome
     Dosage: UNK,
     Route: 065
  4. REGORAFENIB [Concomitant]
     Active Substance: REGORAFENIB
     Indication: Gastrointestinal stromal tumour
     Dosage: 160 MG, QD, SUNITINIB, 37.5 MG DAILY FOR 3 D, ALTERNATING WITH REGORAFENIB, 160 MG DAILY FOR 4 D
     Route: 065
  5. ACITRETIN [Concomitant]
     Active Substance: ACITRETIN
     Indication: Palmar-plantar erythrodysaesthesia syndrome
     Dosage: 10 MG, QD, STARTED AT 10MG OF ACITRETIN DAILY AND INCREASED TO ALTERNATE 10MG OF ACITRETIN DAILY WHI
     Route: 065
  6. SUNITINIB [Concomitant]
     Active Substance: SUNITINIB
     Indication: Gastrointestinal stromal tumour
     Dosage: 37.5 MG, QD, SUNITINIB, 37.5 MG DAILY FOR 3 D, ALTERNATING WITH REGORAFENIB, 160 MG DAILY FOR 4 D
     Route: 065

REACTIONS (2)
  - Drug ineffective for unapproved indication [Unknown]
  - Off label use [Unknown]
